FAERS Safety Report 9361238 (Version 3)
Quarter: 2013Q3

REPORT INFORMATION
  Report Type: Report from Study
  Country: FR (occurrence: FR)
  Receive Date: 20130621
  Receipt Date: 20130711
  Transmission Date: 20140515
  Serious: Yes (Death, Life-Threatening, Hospitalization)
  Sender: FDA-Public Use
  Company Number: FR-BRISTOL-MYERS SQUIBB COMPANY-18983163

PATIENT
  Age: 66 Year
  Sex: Female

DRUGS (16)
  1. CARBOPLATIN [Suspect]
     Indication: OVARIAN CANCER
     Dosage: LAST DOSE: 29APR2013
     Route: 042
     Dates: start: 20130319, end: 20130603
  2. PACLITAXEL [Suspect]
     Indication: OVARIAN CANCER
     Dosage: LAST DOSE: 29APR13
     Route: 042
     Dates: start: 20130319, end: 20130603
  3. BEVACIZUMAB [Suspect]
     Indication: OVARIAN CANCER
  4. COVERSYL [Concomitant]
  5. NOVONORM [Concomitant]
  6. LEVOTHYROX [Concomitant]
  7. LEXOMIL [Concomitant]
     Dosage: 1 DF: 1-5MG.
  8. LOVENOX [Concomitant]
  9. EMEND [Concomitant]
     Dates: start: 20130319, end: 20130322
  10. RANIPLEX [Concomitant]
     Dates: start: 20130319, end: 20130429
  11. POLARAMINE [Concomitant]
     Dates: start: 20130319, end: 20130429
  12. MEDROL [Concomitant]
     Dates: start: 20130318, end: 20130319
  13. ZOPHREN [Concomitant]
     Dates: start: 20130408, end: 20130429
  14. FORLAX [Concomitant]
     Dates: start: 201304
  15. ESOMEPRAZOLE [Concomitant]
     Dates: start: 20130411
  16. MOTILIUM [Concomitant]
     Dates: start: 20130411, end: 20130428

REACTIONS (2)
  - Lung disorder [Fatal]
  - Pyrexia [Unknown]
